FAERS Safety Report 6209568-6 (Version None)
Quarter: 2009Q2

REPORT INFORMATION
  Report Type: 
  Country: None (occurrence: None)
  Receive Date: 20090601
  Receipt Date: 20090525
  Transmission Date: 20091009
  Serious: Yes (Hospitalization, Other)
  Sender: FDA-Public Use
  Company Number: JP-BRISTOL-MYERS SQUIBB COMPANY-14609333

PATIENT
  Age: 52 Year
  Sex: Male

DRUGS (7)
  1. SPRYCEL [Suspect]
     Indication: ACUTE LYMPHOCYTIC LEUKAEMIA
     Dosage: DASATINIB INITIALLY 140MG/D 18JUN08-17JUL08
     Route: 048
     Dates: start: 20090303, end: 20090420
  2. CLINDAMYCIN HCL [Suspect]
  3. AMLODIPINE [Concomitant]
     Route: 048
  4. ZOVIRAX [Concomitant]
     Route: 048
  5. PREDNISOLONE [Concomitant]
     Route: 048
  6. AMOBAN [Concomitant]
     Route: 048
     Dates: start: 20090406
  7. MIYA-BM [Concomitant]
     Route: 048

REACTIONS (6)
  - ANAEMIA [None]
  - FATIGUE [None]
  - HEPATIC FUNCTION ABNORMAL [None]
  - INTERSTITIAL LUNG DISEASE [None]
  - PLATELET COUNT DECREASED [None]
  - PNEUMOCYSTIS JIROVECI PNEUMONIA [None]
